FAERS Safety Report 22260025 (Version 1)
Quarter: 2023Q2

REPORT INFORMATION
  Report Type: Spontaneous
  Country: US (occurrence: None)
  Receive Date: 20230425
  Receipt Date: 20230425
  Transmission Date: 20230722
  Serious: Yes (Hospitalization)
  Sender: FDA-Public Use
  Company Number: None

PATIENT
  Sex: Female

DRUGS (28)
  1. MYCOPHENOLIC ACID [Suspect]
     Active Substance: MYCOPHENOLIC ACID
     Route: 048
     Dates: start: 20230331
  2. TACROLIMUS [Suspect]
     Active Substance: TACROLIMUS
     Route: 048
     Dates: start: 20230331
  3. CALCITRIOL [Concomitant]
  4. CALCIUM [Concomitant]
  5. CARVEDILOL [Concomitant]
     Active Substance: CARVEDILOL
  6. cephalexin [Concomitant]
  7. HYDRALAZINE [Concomitant]
     Active Substance: HYDRALAZINE HYDROCHLORIDE
  8. ACETAMINOPHEN\HYDROCODONE [Concomitant]
     Active Substance: ACETAMINOPHEN\HYDROCODONE
  9. magensium [Concomitant]
  10. METHOCARBAMOL [Concomitant]
     Active Substance: METHOCARBAMOL
  11. NIFEDIPINE [Concomitant]
     Active Substance: NIFEDIPINE
  12. NOVOLOG [Concomitant]
     Active Substance: INSULIN ASPART
  13. OMEPRAZOLE [Concomitant]
     Active Substance: OMEPRAZOLE
  14. PENTAMIDINE [Concomitant]
     Active Substance: PENTAMIDINE
  15. PREDNISONE [Concomitant]
     Active Substance: PREDNISONE
  16. SENOKOT [Concomitant]
     Active Substance: SENNOSIDES
  17. BUMETANIDE [Concomitant]
     Active Substance: BUMETANIDE
  18. clondidine [Concomitant]
  19. FUROSEMIDE [Concomitant]
     Active Substance: FUROSEMIDE
  20. HYDRALAZINE [Concomitant]
     Active Substance: HYDRALAZINE HYDROCHLORIDE
  21. MAGNESIUM OXIDE [Concomitant]
     Active Substance: MAGNESIUM OXIDE
  22. nifediopine [Concomitant]
  23. NOVOLOG [Concomitant]
  24. OMEPRAZOLE [Concomitant]
     Active Substance: OMEPRAZOLE
  25. MAGNESIUM CHLORIDE [Concomitant]
     Active Substance: MAGNESIUM CHLORIDE
  26. TOUJEO MAX [Concomitant]
     Active Substance: INSULIN GLARGINE
  27. vitamin d [Concomitant]
  28. valganciclov [Concomitant]

REACTIONS (1)
  - Plasma cell myeloma [None]
